FAERS Safety Report 18587517 (Version 2)
Quarter: 2020Q4

REPORT INFORMATION
  Report Type: Spontaneous
  Country: RU (occurrence: RU)
  Receive Date: 20201207
  Receipt Date: 20201217
  Transmission Date: 20210114
  Serious: Yes (Other)
  Sender: FDA-Public Use
  Company Number: RU-ASTRAZENECA-2020SF62728

PATIENT
  Age: 57 Year
  Sex: Female

DRUGS (23)
  1. PROPOFOL. [Suspect]
     Active Substance: PROPOFOL
     Indication: SEDATION
     Route: 042
  2. CIPROFLOXACIN. [Suspect]
     Active Substance: CIPROFLOXACIN
     Indication: COVID-19
     Dosage: UNK
     Route: 065
     Dates: start: 20200520
  3. VALSACOR [Suspect]
     Active Substance: VALSARTAN
     Indication: COVID-19
     Route: 065
     Dates: start: 20200521
  4. OMEPRAZOLE. [Concomitant]
     Active Substance: OMEPRAZOLE
     Indication: PROPHYLAXIS
     Dates: start: 20200521
  5. INTERFERON ALFA NOS [Suspect]
     Active Substance: INTERFERON ALFA-2A OR INTERFERON ALFA-2B
     Indication: COVID-19
     Dosage: UNK
     Route: 065
     Dates: start: 20200520
  6. PROPOFOL. [Suspect]
     Active Substance: PROPOFOL
     Indication: MECHANICAL VENTILATION
     Dosage: 2-3 MG/(KG.H), UNK
     Route: 042
     Dates: start: 20200525
  7. LASIX [Suspect]
     Active Substance: FUROSEMIDE
     Indication: COVID-19
     Dosage: UNK
     Route: 065
     Dates: start: 20200521
  8. BISOPROLOL [Suspect]
     Active Substance: BISOPROLOL
     Indication: COVID-19
     Route: 065
     Dates: start: 20200521
  9. KALETRA [Suspect]
     Active Substance: LOPINAVIR\RITONAVIR
     Indication: COVID-19
     Dosage: 400 MG + 100 MG X 2 R / D +
     Route: 065
     Dates: start: 20200520
  10. KALETRA [Suspect]
     Active Substance: LOPINAVIR\RITONAVIR
     Indication: COVID-19
     Dosage: 100 MG X 2 R / D
     Route: 065
  11. AZITHROMYCIN ANHYDROUS. [Suspect]
     Active Substance: AZITHROMYCIN ANHYDROUS
     Indication: COVID-19
     Route: 065
     Dates: start: 20200521
  12. BERODUAL [Suspect]
     Active Substance: FENOTEROL HYDROBROMIDE\IPRATROPIUM BROMIDE
     Indication: COVID-19
     Dosage: UNK
     Route: 055
     Dates: start: 20200521, end: 20200526
  13. SODIUM ENOXAPARIN [Suspect]
     Active Substance: ENOXAPARIN SODIUM
     Indication: PRODUCT USED FOR UNKNOWN INDICATION
     Dosage: 4000 IU X 2P /D, P / C
     Route: 058
     Dates: start: 20200521
  14. MERONEM [Suspect]
     Active Substance: MEROPENEM
     Indication: COVID-19
     Route: 042
     Dates: start: 20200520
  15. BUDESONIDE. [Suspect]
     Active Substance: BUDESONIDE
     Indication: COVID-19
     Dosage: UNK
     Route: 055
     Dates: start: 20200521, end: 20200526
  16. AMBROXOL [Suspect]
     Active Substance: AMBROXOL
     Indication: COVID-19
     Dosage: UNK
     Route: 065
     Dates: start: 20200521
  17. ACTRAPID [Concomitant]
     Active Substance: INSULIN HUMAN
     Indication: DIABETES MELLITUS
     Dosage: UNK
     Dates: start: 20200521
  18. PROPOFOL. [Suspect]
     Active Substance: PROPOFOL
     Indication: SEDATION
     Dosage: 2-3 MG/(KG.H), UNK
     Route: 042
     Dates: start: 20200525
  19. PROPOFOL. [Suspect]
     Active Substance: PROPOFOL
     Indication: MECHANICAL VENTILATION
     Route: 042
  20. HYDROXYCHLOROQUINE [Suspect]
     Active Substance: HYDROXYCHLOROQUINE
     Indication: COVID-19
     Dosage: 200 MG X 2 R / D
     Route: 065
     Dates: start: 20200520
  21. NORADRENALINE [Suspect]
     Active Substance: NOREPINEPHRINE
     Indication: PRODUCT USED FOR UNKNOWN INDICATION
     Dosage: 3-5 MCG/KG/MIN, UNK
     Route: 065
  22. ARBIDOL [Suspect]
     Active Substance: UMIFENOVIR
     Indication: COVID-19
     Dosage: UNK
     Route: 065
     Dates: start: 20200520
  23. LEVOFLOXACIN. [Suspect]
     Active Substance: LEVOFLOXACIN
     Indication: COVID-19
     Route: 065
     Dates: start: 20200520

REACTIONS (1)
  - Cytokine storm [Recovered/Resolved]

NARRATIVE: CASE EVENT DATE: 20200525
